FAERS Safety Report 7487451-6 (Version None)
Quarter: 2011Q2

REPORT INFORMATION
  Report Type: 
  Country: None (occurrence: None)
  Receive Date: 20110510
  Receipt Date: 20110426
  Transmission Date: 20111010
  Serious: Yes (Hospitalization)
  Sender: FDA-Public Use
  Company Number: GER/ITL/11/0018170

PATIENT
  Age: 75 Year
  Sex: Male

DRUGS (5)
  1. CIMETIDINE [Suspect]
     Indication: GASTRODUODENAL ULCER
  2. CITALOPRAM HYDROBROMIDE [Suspect]
     Indication: DEPRESSION
     Dosage: 20 MG
  3. DONEPEZIL HCL [Concomitant]
  4. TICLOPIDINE HYDROCHLORIDE [Concomitant]
  5. QUETIAPINE FUMARATE [Concomitant]

REACTIONS (9)
  - BLOOD GLUCOSE INCREASED [None]
  - RESTLESSNESS [None]
  - HYPERTENSION [None]
  - SEROTONIN SYNDROME [None]
  - MYOCLONUS [None]
  - GASTRODUODENAL HAEMORRHAGE [None]
  - HYPERHIDROSIS [None]
  - TREMOR [None]
  - HYPERREFLEXIA [None]
